FAERS Safety Report 7227132-7 (Version None)
Quarter: 2011Q1

REPORT INFORMATION
  Report Type: 
  Country: None (occurrence: None)
  Receive Date: 20110114
  Receipt Date: 20110107
  Transmission Date: 20110831
  Serious: Yes (Hospitalization)
  Sender: FDA-Public Use
  Company Number: BR-PFIZER INC-2011004580

PATIENT
  Age: 69 Year
  Sex: Female
  Weight: 58 kg

DRUGS (3)
  1. LYRICA [Suspect]
     Indication: DIABETES MELLITUS
     Dosage: UNK
     Route: 048
     Dates: start: 20101216, end: 20101223
  2. INSULIN [Concomitant]
     Dosage: UNK
     Dates: start: 20080101
  3. FUROSEMIDE [Concomitant]
     Dosage: UNK
     Dates: start: 20090101

REACTIONS (7)
  - SEDATION [None]
  - HEADACHE [None]
  - GAIT DISTURBANCE [None]
  - FEELING ABNORMAL [None]
  - DIZZINESS [None]
  - MALAISE [None]
  - VOMITING [None]
